FAERS Safety Report 8872938 (Version 1)
Quarter: 2012Q4

REPORT INFORMATION
  Report Type: 
  Country: US (occurrence: US)
  Receive Date: 20121026
  Receipt Date: 20121026
  Transmission Date: 20130627
  Serious: No
  Sender: FDA-Public Use
  Company Number: US-AMGEN-USASP2012050960

PATIENT
  Sex: Female
  Weight: 52.15 kg

DRUGS (14)
  1. ENBREL [Suspect]
     Indication: PRODUCT USED FOR UNKNOWN INDICATION
     Dosage: 50 mg/ml, qwk
     Route: 058
     Dates: end: 2012
  2. EVISTA [Concomitant]
     Dosage: 60 mg, UNK
  3. METHOTREXATE [Concomitant]
     Dosage: 2.5 mg, UNK
  4. PREDNISONE [Concomitant]
     Dosage: 5 mg, UNK
  5. LIPITOR [Concomitant]
     Dosage: 10 mg, UNK
  6. TRAZODONE [Concomitant]
     Dosage: 100 mg, UNK
  7. LISINOPRIL [Concomitant]
     Dosage: 10 mg, UNK
  8. TRIAMTEREEN/HYDROCHLOOTTHIAZIDE [Concomitant]
     Dosage: 37.5-25
  9. MULTIVITAMIN                       /07504101/ [Concomitant]
     Dosage: UNK
  10. VITAMIN D /00107901/ [Concomitant]
     Dosage: 1000 unit, UNK
  11. PRESERVISION [Concomitant]
     Dosage: UNK
  12. TYLENOL /00020001/ [Concomitant]
     Dosage: 500 mg, UNK
  13. LANSOPRAZOLE [Concomitant]
     Dosage: 30 mg, UNK DR
  14. CALCIUM + VIT D [Concomitant]
     Dosage: 600 UNK, UNK

REACTIONS (1)
  - Drug ineffective [Unknown]
